FAERS Safety Report 22102645 (Version 2)
Quarter: 2023Q1

REPORT INFORMATION
  Report Type: Spontaneous
  Country: US (occurrence: US)
  Receive Date: 20230316
  Receipt Date: 20230331
  Transmission Date: 20230418
  Serious: No
  Sender: FDA-Public Use
  Company Number: US-PFIZER INC-PV202300012414

PATIENT
  Age: 14 Year
  Sex: Male
  Weight: 56.689 kg

DRUGS (1)
  1. GENOTROPIN [Suspect]
     Active Substance: SOMATROPIN
     Dosage: 1.6 MG, 6X/WEEK
     Route: 058
     Dates: start: 2019

REACTIONS (2)
  - Expired device used [Unknown]
  - Drug dose omission by device [Unknown]
